FAERS Safety Report 11057574 (Version 1)
Quarter: 2015Q2

REPORT INFORMATION
  Report Type: Spontaneous
  Country: TR (occurrence: TR)
  Receive Date: 20150422
  Receipt Date: 20150422
  Transmission Date: 20150821
  Serious: Yes (Other)
  Sender: FDA-Public Use
  Company Number: PHHY2015TR041545

PATIENT
  Age: 64 Year
  Sex: Female

DRUGS (1)
  1. TASIGNA [Suspect]
     Active Substance: NILOTINIB
     Indication: CHRONIC MYELOID LEUKAEMIA
     Dosage: 800 MG, QD
     Route: 048
     Dates: start: 2010

REACTIONS (8)
  - Thrombosis [Unknown]
  - Headache [Unknown]
  - Gait disturbance [Recovering/Resolving]
  - Retinal artery thrombosis [Recovering/Resolving]
  - Blindness [Unknown]
  - Temporal arteritis [Recovering/Resolving]
  - Pain in extremity [Unknown]
  - Pain [Recovering/Resolving]

NARRATIVE: CASE EVENT DATE: 201404
